FAERS Safety Report 8834389 (Version 1)
Quarter: 2012Q4

REPORT INFORMATION
  Report Type: 
  Country: US (occurrence: US)
  Receive Date: 20121010
  Receipt Date: 20121010
  Transmission Date: 20130627
  Serious: Yes (Other)
  Sender: FDA-Public Use
  Company Number: US-009507513-1210USA000513

PATIENT
  Sex: Female

DRUGS (5)
  1. JANUVIA [Suspect]
  2. VICTOZA [Suspect]
     Dosage: 6 mg, UNK
  3. LANTUS [Suspect]
     Route: 058
  4. LEVEMIR [Suspect]
     Dosage: .002 UNK, UNK
     Route: 058
  5. NOVOLOG [Suspect]
     Dosage: UNK
     Route: 058

REACTIONS (2)
  - Hypersensitivity [Unknown]
  - Rash [Unknown]
